FAERS Safety Report 25117927 (Version 9)
Quarter: 2025Q4

REPORT INFORMATION
  Report Type: Spontaneous
  Country: US (occurrence: US)
  Receive Date: 20250325
  Receipt Date: 20251229
  Transmission Date: 20260117
  Serious: Yes (Other)
  Sender: GLAXOSMITHKLINE
  Company Number: US-GSK-US2025AMR034482

PATIENT
  Age: 66 Year
  Sex: Female

DRUGS (2)
  1. JEMPERLI [Suspect]
     Active Substance: DOSTARLIMAB-GXLY
     Indication: Endometrial cancer
     Dosage: 1000 MG, Q6W
     Dates: start: 202311
  2. NITROGLYCERIN [Suspect]
     Active Substance: NITROGLYCERIN
     Indication: Product used for unknown indication
     Dosage: UNK

REACTIONS (26)
  - Neuropathy peripheral [Not Recovered/Not Resolved]
  - Diabetes mellitus [Unknown]
  - Depression [Not Recovered/Not Resolved]
  - Fatigue [Unknown]
  - Ankle fracture [Not Recovered/Not Resolved]
  - Headache [Not Recovered/Not Resolved]
  - Gastrointestinal wall thickening [Not Recovered/Not Resolved]
  - Bone pain [Unknown]
  - Back pain [Not Recovered/Not Resolved]
  - Constipation [Unknown]
  - Rash [Not Recovered/Not Resolved]
  - Urinary tract infection [Unknown]
  - Hypertension [Unknown]
  - Palpitations [Unknown]
  - Pain [Unknown]
  - Pneumaturia [Unknown]
  - Splenomegaly [Unknown]
  - Hepatomegaly [Unknown]
  - Renal cyst [Unknown]
  - Anaemia [Unknown]
  - Back disorder [Unknown]
  - Pain in extremity [Unknown]
  - Nausea [Unknown]
  - Alopecia [Unknown]
  - Weight decreased [Unknown]
  - Somnolence [Not Recovered/Not Resolved]

NARRATIVE: CASE EVENT DATE: 20241201
